FAERS Safety Report 6271560-3 (Version None)
Quarter: 2009Q3

REPORT INFORMATION
  Report Type: 
  Country: None (occurrence: None)
  Receive Date: 20090717
  Receipt Date: 20090703
  Transmission Date: 20100115
  Serious: Yes (Hospitalization, Other)
  Sender: FDA-Public Use
  Company Number: JP-PFIZER INC-2009232221

PATIENT
  Age: 75 Year

DRUGS (16)
  1. SOLANAX [Suspect]
     Indication: ANXIETY DISORDER
     Dosage: 0.4 MG, 1X/DAY
     Dates: start: 20040101, end: 20090622
  2. BENZALIN [Concomitant]
     Indication: INSOMNIA
     Dosage: UNK
     Route: 048
     Dates: start: 20040101, end: 20090619
  3. ALENDRONATE SODIUM [Concomitant]
     Indication: OSTEOPOROSIS
     Route: 048
     Dates: start: 20040101
  4. TOYOFAROL [Concomitant]
     Indication: OSTEOPOROSIS
     Route: 048
     Dates: start: 20040101, end: 20090625
  5. CELECOXIB [Concomitant]
     Indication: SPINAL OSTEOARTHRITIS
     Route: 048
     Dates: start: 20040101, end: 20090625
  6. CYANOCOBALAMIN [Concomitant]
     Indication: NEUROPATHY PERIPHERAL
     Route: 048
     Dates: start: 20040101
  7. JUVELA NICOTINATE [Concomitant]
     Indication: LIPIDS ABNORMAL
     Route: 048
     Dates: start: 20040101
  8. LOSARTAN POTASSIUM AND HYDROCHLOROTHIAZIDE [Concomitant]
     Indication: ARTERIOSCLEROSIS OBLITERANS
     Route: 048
     Dates: start: 20040101, end: 20090619
  9. BLOPRESS [Concomitant]
     Indication: HYPERTENSION
     Route: 048
     Dates: start: 20040101
  10. PAXIL [Concomitant]
     Indication: DEPRESSION
     Route: 048
     Dates: start: 20040101
  11. LASIX [Concomitant]
     Indication: BLOOD UREA DECREASED
     Route: 048
     Dates: start: 20040101
  12. SERMION [Concomitant]
     Indication: CARDIOVASCULAR DISORDER
     Route: 048
     Dates: start: 20040101
  13. TAKEPRON [Concomitant]
     Indication: REFLUX OESOPHAGITIS
     Route: 048
     Dates: start: 20040101
  14. ALLOPURINOL [Concomitant]
     Indication: HYPERURICAEMIA
     Route: 048
     Dates: start: 20040101
  15. REQUIP [Concomitant]
     Indication: PARKINSON'S DISEASE
     Route: 048
     Dates: start: 20040101
  16. RIVOTRIL [Concomitant]
     Indication: CONVULSION
     Route: 048
     Dates: start: 20040101, end: 20090625

REACTIONS (2)
  - HYPONATRAEMIA [None]
  - RENAL IMPAIRMENT [None]
